FAERS Safety Report 8343857 (Version 4)
Quarter: 2013Q1

REPORT INFORMATION
  Report Type: Spontaneous
  Country: US (occurrence: US)
  Receive Date: 20120119
  Receipt Date: 20130204
  Transmission Date: 20140127
  Serious: Yes (Hospitalization, Other)
  Sender: FDA-Public Use
  Company Number: US-009507513-1201USA02270

PATIENT
  Sex: Female
  Weight: 63.95 kg

DRUGS (9)
  1. FOSAMAX [Suspect]
     Indication: OSTEOPOROSIS
     Dosage: 10 MG, ORAL
     Route: 048
     Dates: start: 199803, end: 200103
  2. FOSAMAX [Suspect]
     Dosage: 70 MG, ORAL
     Route: 048
     Dates: start: 200104, end: 200809
  3. FOSAMAX [Suspect]
     Indication: OSTEOPOROSIS
     Dosage: 70 MG, ORAL
     Route: 048
     Dates: start: 200810, end: 200903
  4. ALENDRONATE SODIUM [Suspect]
     Indication: OSTEOPOROSIS
     Dosage: 70 MG, UNK
     Dates: start: 20090313, end: 201004
  5. PREMARIN [Concomitant]
     Indication: MENOPAUSE
     Route: 062
  6. CLIMARA [Concomitant]
     Indication: MENOPAUSE
     Dosage: 0.06 MG, UNK
     Route: 063
     Dates: end: 20020322
  7. VIVELLE (ESTRADIOL) [Concomitant]
     Indication: MENOPAUSE
     Dosage: UNK
     Route: 062
     Dates: start: 20020322
  8. PREMARIN [Concomitant]
     Indication: MENOPAUSE
     Route: 061
  9. ESCLIM [Concomitant]
     Indication: MENOPAUSE

REACTIONS (58)
  - Femur fracture [Unknown]
  - Vaginal dysplasia [Unknown]
  - Papilloma [Recovered/Resolved]
  - Intervertebral disc protrusion [Unknown]
  - Salpingo-oophorectomy bilateral [Unknown]
  - Breast cyst [Unknown]
  - Gastrointestinal haemorrhage [Unknown]
  - Vaginal haemorrhage [Unknown]
  - Femur fracture [Unknown]
  - Low turnover osteopathy [Unknown]
  - Fracture nonunion [Unknown]
  - Vitamin D deficiency [Unknown]
  - Depression [Unknown]
  - Herpes zoster [Unknown]
  - Pyrexia [Unknown]
  - Adverse event [Unknown]
  - Calcium deficiency [Unknown]
  - Toxoplasmosis [Recovered/Resolved]
  - Pulmonary mass [Unknown]
  - Fatigue [Recovered/Resolved]
  - Irritable bowel syndrome [Unknown]
  - Hypercholesterolaemia [Unknown]
  - Hypertriglyceridaemia [Unknown]
  - Glaucoma [Unknown]
  - Gastrointestinal disorder [Unknown]
  - Dyspareunia [Unknown]
  - Coital bleeding [Unknown]
  - Papilloma viral infection [Unknown]
  - Impaired healing [Unknown]
  - Osteoarthritis [Unknown]
  - Anxiety [Unknown]
  - Diverticulum [Unknown]
  - Seborrhoeic keratosis [Unknown]
  - Breast tenderness [Unknown]
  - Large intestine polyp [Unknown]
  - Smear cervix abnormal [Unknown]
  - Osteopenia [Unknown]
  - Intervertebral disc degeneration [Unknown]
  - Hiatus hernia [Unknown]
  - Mixed incontinence [Unknown]
  - Stress urinary incontinence [Unknown]
  - Urethral intrinsic sphincter deficiency [Unknown]
  - Nocturia [Unknown]
  - Contusion [Unknown]
  - Paraesthesia [Unknown]
  - Vitamin B12 deficiency [Unknown]
  - Radiculitis lumbosacral [Unknown]
  - Lumbar spinal stenosis [Unknown]
  - Bradyphrenia [Unknown]
  - Renal colic [Unknown]
  - Somnolence [Unknown]
  - Pain [Unknown]
  - Adjustment disorder [Unknown]
  - Gastrooesophageal reflux disease [Unknown]
  - Back pain [Unknown]
  - Off label use [Unknown]
  - Dysgeusia [Unknown]
  - Drug ineffective [Unknown]
